FAERS Safety Report 16264175 (Version 1)
Quarter: 2019Q2

REPORT INFORMATION
  Report Type: Spontaneous
  Country: US (occurrence: US)
  Receive Date: 20190501
  Receipt Date: 20190501
  Transmission Date: 20190711
  Serious: No
  Sender: FDA-Public Use
  Company Number: None

PATIENT
  Age: 32 Year
  Sex: Female
  Weight: 72.6 kg

DRUGS (4)
  1. ONDANSETRON ODT [Concomitant]
     Active Substance: ONDANSETRON
     Dates: start: 20180518, end: 20180518
  2. KETOROLAC INJECTION [Concomitant]
     Dates: start: 20180518, end: 20180518
  3. SUMATRIPTAN. [Suspect]
     Active Substance: SUMATRIPTAN
     Dosage: ?          OTHER FREQUENCY:ONCE;?
     Route: 058
     Dates: start: 20180518, end: 20180518
  4. CABERGOLINE. [Suspect]
     Active Substance: CABERGOLINE
     Indication: PROLACTIN-PRODUCING PITUITARY TUMOUR
     Route: 048

REACTIONS (1)
  - Drug interaction [None]

NARRATIVE: CASE EVENT DATE: 20180518
